FAERS Safety Report 10844221 (Version 1)
Quarter: 2015Q1

REPORT INFORMATION
  Report Type: Spontaneous
  Country: CH (occurrence: CH)
  Receive Date: 20150220
  Receipt Date: 20150220
  Transmission Date: 20150721
  Serious: Yes (Death)
  Sender: FDA-Public Use
  Company Number: CH-PFIZER INC-2015062363

PATIENT
  Age: 83 Year
  Sex: Female

DRUGS (16)
  1. PANTOZOL [Suspect]
     Active Substance: PANTOPRAZOLE SODIUM
     Dosage: 20 MG, 2X/DAY
     Route: 065
  2. NOVALGIN [Suspect]
     Active Substance: METAMIZOLE SODIUM
     Dosage: UNK, AS NEEDED (PNR)
     Route: 048
  3. COVERSUM N [Suspect]
     Active Substance: PERINDOPRIL
     Indication: HYPERTENSION
     Dosage: 0.5 DF, 1X/DAY
     Route: 065
  4. SYMBICORT [Concomitant]
     Active Substance: BUDESONIDE\FORMOTEROL FUMARATE DIHYDRATE
     Dosage: UNK
  5. MARCOUMAR [Concomitant]
     Active Substance: PHENPROCOUMON
     Dosage: UNK
  6. ELTROXIN [Concomitant]
     Active Substance: LEVOTHYROXINE
     Dosage: UNK
  7. CO-AMOXI [Suspect]
     Active Substance: AMOXICILLIN\CLAVULANATE POTASSIUM
     Indication: URINARY TRACT INFECTION
     Dosage: WAS TAKEN ABOUT 10 DAYS
     Route: 065
     Dates: end: 20150108
  8. OXYCONTIN [Concomitant]
     Active Substance: OXYCODONE HYDROCHLORIDE
     Dosage: 20 MG, UNK
  9. OXYCONTIN [Concomitant]
     Active Substance: OXYCODONE HYDROCHLORIDE
     Dosage: 10 MG, UNK
  10. IMIGRAN [Concomitant]
     Active Substance: SUMATRIPTAN SUCCINATE
     Dosage: UNK
  11. TOREM [Suspect]
     Active Substance: TORSEMIDE
     Dosage: 10 MG, 4X/DAY
     Route: 065
     Dates: end: 20150108
  12. VI-DE 3 [Concomitant]
     Dosage: UNK
  13. MOTILIUM [Concomitant]
     Active Substance: DOMPERIDONE
     Dosage: UNK
  14. DAFALGAN [Suspect]
     Active Substance: ACETAMINOPHEN
     Dosage: SUPP. 300 MG, AS NEEDED
     Route: 065
  15. FEMARA [Suspect]
     Active Substance: LETROZOLE
     Dosage: 2.5 MG, DAILY
     Route: 065
  16. ARIMIDEX [Concomitant]
     Active Substance: ANASTROZOLE
     Dosage: UNK

REACTIONS (2)
  - Pancytopenia [Fatal]
  - Neutropenia [Fatal]

NARRATIVE: CASE EVENT DATE: 20150108
